FAERS Safety Report 9469561 (Version 1)
Quarter: 2013Q3

REPORT INFORMATION
  Report Type: Spontaneous
  Country: US (occurrence: US)
  Receive Date: 20130822
  Receipt Date: 20130822
  Transmission Date: 20140515
  Serious: No
  Sender: FDA-Public Use
  Company Number: US-BIOGENIDEC-2013BI079430

PATIENT
  Sex: Female

DRUGS (3)
  1. TYSABRI [Suspect]
     Indication: PRODUCT USED FOR UNKNOWN INDICATION
  2. TECFIDERA [Concomitant]
     Indication: MULTIPLE SCLEROSIS
  3. COPAXONE [Concomitant]

REACTIONS (1)
  - Multiple sclerosis relapse [Recovered/Resolved]
